FAERS Safety Report 6549638-6 (Version None)
Quarter: 2010Q1

REPORT INFORMATION
  Report Type: 
  Country: None (occurrence: None)
  Receive Date: 20100119
  Receipt Date: 20100112
  Transmission Date: 20100710
  Serious: Yes (Other)
  Sender: FDA-Public Use
  Company Number: SPV1-2010-00020

PATIENT
  Age: 6 Year
  Sex: Female
  Weight: 23.9 kg

DRUGS (2)
  1. DEXTROAMPHETAMINE [Suspect]
     Indication: ATTENTION DEFICIT/HYPERACTIVITY DISORDER
     Dosage: 7.5 MG, 3X/DAY:TID, ORAL
     Route: 048
     Dates: start: 20080430
  2. CONCERTA [Suspect]
     Indication: ATTENTION DEFICIT/HYPERACTIVITY DISORDER
     Dosage: 72 MG, ORAL
     Route: 048

REACTIONS (5)
  - BLOOD PRESSURE DECREASED [None]
  - ELECTROCARDIOGRAM QT PROLONGED [None]
  - TACHYCARDIA [None]
  - TACHYPNOEA [None]
  - VOMITING [None]
